FAERS Safety Report 6220523-2 (Version None)
Quarter: 2009Q2

REPORT INFORMATION
  Report Type: 
  Country: None (occurrence: None)
  Receive Date: 20090610
  Receipt Date: 20090527
  Transmission Date: 20091009
  Serious: Yes (Other)
  Sender: FDA-Public Use
  Company Number: CH-AMGEN-US350232

PATIENT

DRUGS (1)
  1. ENBREL [Suspect]
     Indication: RHEUMATOID ARTHRITIS
     Dosage: UNSPECIFIED
     Route: 065

REACTIONS (1)
  - NEOPLASM MALIGNANT [None]
